FAERS Safety Report 19692034 (Version 1)
Quarter: 2021Q3

REPORT INFORMATION
  Report Type: Spontaneous
  Country: BE (occurrence: BE)
  Receive Date: 20210812
  Receipt Date: 20210812
  Transmission Date: 20211014
  Serious: Yes (Hospitalization, Other)
  Sender: FDA-Public Use
  Company Number: BE-MYLANLABS-2021M1049111

PATIENT
  Sex: Male

DRUGS (1)
  1. VANCOMYCIN MYLAN 1 G [Suspect]
     Active Substance: VANCOMYCIN HYDROCHLORIDE
     Indication: STAPHYLOCOCCAL INFECTION
     Dosage: UNK, QD
     Route: 042
     Dates: start: 20210705

REACTIONS (3)
  - Blood creatinine increased [Recovered/Resolved]
  - Nephritis allergic [Recovered/Resolved]
  - Renal failure [Recovered/Resolved]

NARRATIVE: CASE EVENT DATE: 20210707
